FAERS Safety Report 4846892-3 (Version None)
Quarter: 2005Q4

REPORT INFORMATION
  Report Type: 
  Country: None (occurrence: None)
  Receive Date: 20051202
  Receipt Date: 20051124
  Transmission Date: 20060501
  Serious: Yes (Life-Threatening, Other)
  Sender: FDA-Public Use
  Company Number: 2005US001731

PATIENT
  Age: 18 Year
  Sex: Male

DRUGS (1)
  1. AMBISOME [Suspect]
     Indication: SYSTEMIC MYCOSIS
     Dosage: 5 MG/KG, UID/QD, IV NOS
     Route: 042
     Dates: start: 20050907

REACTIONS (4)
  - CATHETER RELATED COMPLICATION [None]
  - DEVICE MIGRATION [None]
  - DYSPNOEA [None]
  - EFFUSION [None]
